FAERS Safety Report 11338124 (Version 1)
Quarter: 2015Q3

REPORT INFORMATION
  Report Type: Spontaneous
  Country: US (occurrence: US)
  Receive Date: 20150803
  Receipt Date: 20150803
  Transmission Date: 20151125
  Serious: No
  Sender: FDA-Public Use
  Company Number: US-ELI_LILLY_AND_COMPANY-US201005000459

PATIENT
  Sex: Female

DRUGS (3)
  1. GEODON [Concomitant]
     Active Substance: ZIPRASIDONE HYDROCHLORIDE\ZIPRASIDONE MESYLATE
     Dosage: 20 MG, UNKNOWN
  2. ZYPREXA [Suspect]
     Active Substance: OLANZAPINE
     Dosage: 15 MG, UNKNOWN
     Dates: start: 2010
  3. ZYPREXA [Suspect]
     Active Substance: OLANZAPINE
     Dosage: 25 MG, UNKNOWN

REACTIONS (3)
  - Weight increased [Recovered/Resolved]
  - Insomnia [Unknown]
  - Irritability [Unknown]
